FAERS Safety Report 11097237 (Version 2)
Quarter: 2015Q2

REPORT INFORMATION
  Report Type: Spontaneous
  Country: CH (occurrence: GB)
  Receive Date: 20150507
  Receipt Date: 20150529
  Transmission Date: 20150821
  Serious: Yes (Death)
  Sender: FDA-Public Use
  Company Number: CH-LPDUSPRD-20150315

PATIENT
  Age: 83 Year
  Sex: Male
  Weight: 68 kg

DRUGS (1)
  1. FERINJECT [Suspect]
     Active Substance: FERRIC CARBOXYMALTOSE
     Dosage: 1000MG TWICE IN WEEK
     Route: 042
     Dates: start: 20150421

REACTIONS (2)
  - Death [Fatal]
  - Drug prescribing error [Unknown]

NARRATIVE: CASE EVENT DATE: 20150422
